FAERS Safety Report 13396680 (Version 3)
Quarter: 2018Q2

REPORT INFORMATION
  Report Type: Spontaneous
  Country: US (occurrence: US)
  Receive Date: 20170403
  Receipt Date: 20180608
  Transmission Date: 20180711
  Serious: Yes (Hospitalization)
  Sender: FDA-Public Use
  Company Number: US-JNJFOC-20170219683

PATIENT
  Sex: Male

DRUGS (1)
  1. ZYTIGA [Suspect]
     Active Substance: ABIRATERONE ACETATE
     Indication: PRODUCT USED FOR UNKNOWN INDICATION
     Dosage: 4X250MG
     Route: 048

REACTIONS (2)
  - Pneumonia [Unknown]
  - Nasopharyngitis [Recovering/Resolving]

NARRATIVE: CASE EVENT DATE: 2018
